FAERS Safety Report 16972651 (Version 1)
Quarter: 2019Q4

REPORT INFORMATION
  Report Type: Spontaneous
  Country: US (occurrence: US)
  Receive Date: 20191030
  Receipt Date: 20191030
  Transmission Date: 20200122
  Serious: Yes (Other)
  Sender: FDA-Public Use
  Company Number: US-ABBVIE-19K-163-2978488-00

PATIENT

DRUGS (1)
  1. LUPRON [Suspect]
     Active Substance: LEUPROLIDE ACETATE
     Indication: ENDOMETRIOSIS
     Route: 050

REACTIONS (12)
  - Migraine [Unknown]
  - Hypoaesthesia [Unknown]
  - Suicidal ideation [Unknown]
  - General symptom [Unknown]
  - Insomnia [Unknown]
  - Depression [Unknown]
  - Frustration tolerance decreased [Unknown]
  - Fatigue [Unknown]
  - Surgery [Unknown]
  - Abnormal dreams [Unknown]
  - Adverse drug reaction [Unknown]
  - Vision blurred [Unknown]
